FAERS Safety Report 10060142 (Version 1)
Quarter: 2014Q2

REPORT INFORMATION
  Report Type: Spontaneous
  Country: US (occurrence: US)
  Receive Date: 20140404
  Receipt Date: 20140404
  Transmission Date: 20141212
  Serious: Yes (Other)
  Sender: FDA-Public Use
  Company Number: US-ELI_LILLY_AND_COMPANY-US201403010491

PATIENT
  Sex: Female

DRUGS (1)
  1. ILETIN BEEF/PORK LENTE [Suspect]
     Indication: TYPE 1 DIABETES MELLITUS
     Dosage: UNK
     Route: 065
     Dates: start: 1977, end: 1985

REACTIONS (2)
  - Maternal exposure during pregnancy [Recovered/Resolved]
  - Diabetes mellitus inadequate control [Unknown]
